FAERS Safety Report 9304369 (Version 1)
Quarter: 2013Q2

REPORT INFORMATION
  Report Type: Spontaneous
  Country: US (occurrence: US)
  Receive Date: 20130522
  Receipt Date: 20130522
  Transmission Date: 20140414
  Serious: Yes (Hospitalization, Other)
  Sender: FDA-Public Use
  Company Number: US-B.I. PHARMACEUTICALS,INC./RIDGEFIELD-2013-BI-13651BP

PATIENT
  Age: 78 Year
  Sex: Female

DRUGS (11)
  1. SPIRIVA [Suspect]
     Indication: BRONCHITIS CHRONIC
     Dosage: 18 MCG
     Route: 055
     Dates: start: 2004
  2. SPIRIVA [Suspect]
     Indication: EMPHYSEMA
  3. SPIRIVA [Suspect]
     Indication: CHRONIC OBSTRUCTIVE PULMONARY DISEASE
  4. LISINOPRIL [Concomitant]
     Indication: HYPERTENSION
     Dosage: 10 MG
     Route: 048
     Dates: start: 2004
  5. TRAZADONE [Concomitant]
     Indication: INSOMNIA
     Dosage: 150 MG
     Route: 048
     Dates: start: 2000
  6. PROVENTIL [Concomitant]
     Indication: ASTHMA
     Route: 055
     Dates: start: 2004
  7. HYDROCODONE [Concomitant]
     Indication: BACK PAIN
     Dosage: STRENGTH: 5-500 MG
     Route: 048
     Dates: start: 2011
  8. ASPIRIN [Concomitant]
     Indication: ATRIAL SEPTAL DEFECT
     Dosage: 81 MG
     Route: 048
     Dates: start: 2007
  9. ADVAIR [Concomitant]
     Indication: CHRONIC OBSTRUCTIVE PULMONARY DISEASE
     Dosage: 4 PUF
     Route: 055
     Dates: start: 2004
  10. METOPROLOL TARTRATE [Concomitant]
     Indication: HYPERTENSION
     Dosage: 25 MG
     Route: 048
     Dates: start: 2011
  11. CELEBREX [Concomitant]
     Indication: INFLAMMATION
     Route: 048
     Dates: start: 2011

REACTIONS (6)
  - Bronchopneumonia [Recovered/Resolved with Sequelae]
  - Atrial septal defect [Recovered/Resolved]
  - Convulsion [Recovered/Resolved]
  - Convulsion [Recovered/Resolved]
  - Spinal column stenosis [Recovered/Resolved]
  - Anxiety [Not Recovered/Not Resolved]
